FAERS Safety Report 6140742-3 (Version None)
Quarter: 2009Q2

REPORT INFORMATION
  Report Type: 
  Country: None (occurrence: None)
  Receive Date: 20090402
  Receipt Date: 20090323
  Transmission Date: 20091009
  Serious: Yes (Hospitalization, Other)
  Sender: FDA-Public Use
  Company Number: PHHO2009US03914

PATIENT
  Sex: Male
  Weight: 110 kg

DRUGS (14)
  1. IMATINIB MESYLATE [Suspect]
     Indication: GASTROINTESTINAL STROMAL TUMOUR
     Dosage: 200 MG, QD
     Route: 048
     Dates: start: 20080724, end: 20081002
  2. IMATINIB MESYLATE [Suspect]
     Dosage: 400 MG, BID
     Dates: start: 20081016
  3. SUNITINIB MALATE [Suspect]
     Indication: GASTROINTESTINAL STROMAL TUMOUR
     Dosage: 37.5MG A DAY
     Route: 048
     Dates: start: 20080710, end: 20081004
  4. NEUTRA-PHOS [Concomitant]
     Dosage: UNK
  5. K-DUR [Concomitant]
     Dosage: UNK
  6. COMPAZINE [Concomitant]
  7. PROMETHAZINE HCL [Concomitant]
  8. OXYCODONE HCL [Concomitant]
  9. HYDROCHLOROTHIAZIDE [Concomitant]
  10. LISINOPRIL [Concomitant]
  11. CLONIDINE [Concomitant]
  12. OXYCONTIN [Concomitant]
  13. LOVENOX [Concomitant]
  14. ZOFRAN [Concomitant]

REACTIONS (11)
  - ARTERIAL OCCLUSIVE DISEASE [None]
  - ARTHRALGIA [None]
  - ERYTHEMA [None]
  - FATIGUE [None]
  - ILIAC ARTERY THROMBOSIS [None]
  - INGROWING NAIL [None]
  - NAIL OPERATION [None]
  - NAUSEA [None]
  - PAIN IN EXTREMITY [None]
  - SKIN WARM [None]
  - SWELLING [None]
